FAERS Safety Report 15320063 (Version 1)
Quarter: 2018Q3

REPORT INFORMATION
  Report Type: Spontaneous
  Country: US (occurrence: US)
  Receive Date: 20180827
  Receipt Date: 20180827
  Transmission Date: 20181010
  Serious: No
  Sender: FDA-Public Use
  Company Number: US-PFIZER INC-2018340331

PATIENT
  Age: 6 Year
  Sex: Male

DRUGS (1)
  1. GENOTROPIN MQ [Suspect]
     Active Substance: SOMATROPIN
     Dosage: 0.8 MG, DAILY
     Dates: start: 20151118

REACTIONS (3)
  - Insulin-like growth factor increased [Unknown]
  - Bone density increased [Unknown]
  - Blood chromogranin A increased [Unknown]

NARRATIVE: CASE EVENT DATE: 20170831
